FAERS Safety Report 7494371-X (Version None)
Quarter: 2011Q2

REPORT INFORMATION
  Report Type: 
  Country: None (occurrence: None)
  Receive Date: 20110520
  Receipt Date: 20110516
  Transmission Date: 20111010
  Serious: Yes (Other)
  Sender: FDA-Public Use
  Company Number: FR-MERCK-1105FRA00069

PATIENT
  Age: 79 Year
  Sex: Male

DRUGS (2)
  1. PRIMAXIN [Suspect]
     Indication: PYREXIA
     Route: 042
     Dates: start: 20101222, end: 20101227
  2. GEMCITABINE [Concomitant]
     Route: 030
     Dates: start: 20101222, end: 20101226

REACTIONS (1)
  - GENERALISED NON-CONVULSIVE EPILEPSY [None]
